FAERS Safety Report 13540523 (Version 2)
Quarter: 2017Q3

REPORT INFORMATION
  Report Type: Spontaneous
  Country: FR (occurrence: FR)
  Receive Date: 20170512
  Receipt Date: 20170731
  Transmission Date: 20171127
  Serious: Yes (Hospitalization)
  Sender: FDA-Public Use
  Company Number: FR-PFIZER INC-2017200217

PATIENT
  Age: 32 Year
  Sex: Male

DRUGS (2)
  1. PAMIDRONATE DISODIUM. [Suspect]
     Active Substance: PAMIDRONATE DISODIUM
     Indication: FIBROUS DYSPLASIA OF BONE
     Dosage: 60 MG, 1X/DAY
     Route: 042
     Dates: start: 20170228, end: 20170301
  2. DAFALGANHOP [Concomitant]
     Indication: ANALGESIC INTERVENTION SUPPORTIVE THERAPY
     Dosage: 3 G, 1X/DAY
     Route: 048
     Dates: start: 20170228, end: 20170301

REACTIONS (1)
  - Injection site thrombosis [Recovered/Resolved]

NARRATIVE: CASE EVENT DATE: 20170304
